FAERS Safety Report 10887115 (Version 1)
Quarter: 2015Q1

REPORT INFORMATION
  Report Type: Spontaneous
  Country: US (occurrence: US)
  Receive Date: 20150304
  Receipt Date: 20150304
  Transmission Date: 20150721
  Serious: Yes (Other)
  Sender: FDA-Public Use
  Company Number: US-PFIZER INC-2015075699

PATIENT
  Sex: Male

DRUGS (1)
  1. GEMFIBROZIL. [Suspect]
     Active Substance: GEMFIBROZIL
     Dosage: UNK

REACTIONS (5)
  - Pneumonia [Unknown]
  - Malaise [Unknown]
  - Helicobacter infection [Unknown]
  - Atrial fibrillation [Unknown]
  - Diarrhoea [Unknown]
